FAERS Safety Report 6310037-3 (Version None)
Quarter: 2009Q3

REPORT INFORMATION
  Report Type: 
  Country: None (occurrence: None)
  Receive Date: 20090814
  Receipt Date: 20090811
  Transmission Date: 20100115
  Serious: Yes (Hospitalization)
  Sender: FDA-Public Use
  Company Number: JP-ABBOTT-09P-087-0589450-00

PATIENT
  Sex: Male

DRUGS (3)
  1. CLARITHROMYCIN [Suspect]
     Indication: HELICOBACTER INFECTION
     Route: 048
     Dates: start: 20090722, end: 20090728
  2. TAKEPRON [Concomitant]
     Indication: HELICOBACTER INFECTION
     Dosage: 60MG DAILY
     Route: 048
     Dates: start: 20090722, end: 20090728
  3. AMOXICILLIN [Concomitant]
     Indication: HELICOBACTER INFECTION
     Dosage: 1500MG DAILY
     Route: 048
     Dates: start: 20090722, end: 20090728

REACTIONS (1)
  - RHABDOMYOLYSIS [None]
